FAERS Safety Report 5608697-5 (Version None)
Quarter: 2008Q1

REPORT INFORMATION
  Report Type: 
  Country: None (occurrence: None)
  Receive Date: 20080131
  Receipt Date: 20080118
  Transmission Date: 20080703
  Serious: Yes (Other)
  Sender: FDA-Public Use
  Company Number: US-PFIZER INC-2007102142

PATIENT
  Sex: Female
  Weight: 101.36 kg

DRUGS (8)
  1. DILANTIN [Suspect]
     Indication: CONVULSION
  2. DILANTIN [Suspect]
  3. PHENYTOIN [Suspect]
  4. VALIUM [Concomitant]
  5. PHENOBARBITAL TAB [Concomitant]
  6. ACIPHEX [Concomitant]
  7. PREMARIN [Concomitant]
  8. RISPERDAL [Concomitant]

REACTIONS (4)
  - CONVULSION [None]
  - HEADACHE [None]
  - MALAISE [None]
  - VOMITING [None]
